FAERS Safety Report 17648228 (Version 1)
Quarter: 2020Q2

REPORT INFORMATION
  Report Type: Spontaneous
  Country: US (occurrence: US)
  Receive Date: 20200409
  Receipt Date: 20200409
  Transmission Date: 20200713
  Serious: No
  Sender: FDA-Public Use
  Company Number: US-009507513-2004USA000451

PATIENT
  Age: 55 Year
  Sex: Male

DRUGS (3)
  1. SINGULAIR [Suspect]
     Active Substance: MONTELUKAST SODIUM
     Indication: ASTHMA LATE ONSET
     Dosage: 10MG ONCE A DAY
     Route: 048
  2. SINGULAIR [Suspect]
     Active Substance: MONTELUKAST SODIUM
     Indication: ASTHMA LATE ONSET
     Dosage: 10MG ONCE A DAY
     Route: 048
  3. TYLENOL [Concomitant]
     Active Substance: ACETAMINOPHEN

REACTIONS (6)
  - Asthenia [Recovered/Resolved]
  - Coronavirus infection [Recovered/Resolved]
  - Drug effective for unapproved indication [Unknown]
  - Pain [Recovered/Resolved]
  - Back pain [Recovered/Resolved]
  - Incorrect dose administered [Unknown]
